FAERS Safety Report 10153524 (Version 1)
Quarter: 2014Q2

REPORT INFORMATION
  Report Type: Spontaneous
  Country: IL (occurrence: IL)
  Receive Date: 20140505
  Receipt Date: 20140505
  Transmission Date: 20141212
  Serious: Yes (Other)
  Sender: FDA-Public Use
  Company Number: PHHY2014IL053708

PATIENT
  Age: 57 Year
  Sex: Male

DRUGS (2)
  1. VALSARTAN [Suspect]
     Indication: ESSENTIAL HYPERTENSION
     Dosage: 160 MG PER DAY
  2. PRAVASTATIN [Concomitant]
     Indication: HYPERLIPIDAEMIA
     Dosage: 20 MG PER DAY

REACTIONS (9)
  - Ileus [Recovered/Resolved]
  - Gastric dilatation [Recovered/Resolved]
  - Abdominal pain [Recovered/Resolved]
  - Abdominal distension [Recovered/Resolved]
  - Nausea [Recovered/Resolved]
  - Constipation [Recovered/Resolved]
  - Abdominal tenderness [Recovered/Resolved]
  - Gastrointestinal sounds abnormal [Recovered/Resolved]
  - Small intestinal obstruction [Recovered/Resolved]
